FAERS Safety Report 13006491 (Version 4)
Quarter: 2017Q1

REPORT INFORMATION
  Report Type: Report from Study
  Country: MX (occurrence: MX)
  Receive Date: 20161207
  Receipt Date: 20170124
  Transmission Date: 20170428
  Serious: Yes (Other)
  Sender: FDA-Public Use
  Company Number: PHHY2016MX164850

PATIENT
  Age: 42 Year
  Sex: Male
  Weight: 53 kg

DRUGS (6)
  1. COMBIVENT [Concomitant]
     Active Substance: ALBUTEROL SULFATE\IPRATROPIUM BROMIDE
     Indication: PRODUCT USED FOR UNKNOWN INDICATION
     Dosage: UNK
     Route: 065
  2. ULTIBRO BREEZHALER [Suspect]
     Active Substance: GLYCOPYRRONIUM\INDACATEROL
     Indication: OBLITERATIVE BRONCHIOLITIS
     Dosage: 1 DF (50 UG GLYCOPYRRONIUM, 110 UG INDACATEROL), QD (STARTED 4 YEARS AGO)
     Route: 055
  3. ALBUTEROL. [Concomitant]
     Active Substance: ALBUTEROL
     Indication: PRODUCT USED FOR UNKNOWN INDICATION
     Route: 065
  4. SALBUTAMOL [Concomitant]
     Active Substance: ALBUTEROL
     Indication: PRODUCT USED FOR UNKNOWN INDICATION
     Dosage: 1 DF, QD
     Route: 065
  5. MIFLONIDE [Suspect]
     Active Substance: BUDESONIDE
     Indication: OBLITERATIVE BRONCHIOLITIS
     Dosage: 200 UG, QD (STARTED 4 YEARS AGO)
     Route: 055
  6. BETAMETHASONE. [Concomitant]
     Active Substance: BETAMETHASONE
     Indication: PRODUCT USED FOR UNKNOWN INDICATION
     Dosage: UNK
     Route: 065

REACTIONS (14)
  - Respiratory failure [Unknown]
  - Back pain [Unknown]
  - Insomnia [Unknown]
  - Irritability [Unknown]
  - Sensitivity to weather change [Not Recovered/Not Resolved]
  - Dyspnoea [Unknown]
  - Feeling abnormal [Not Recovered/Not Resolved]
  - Cough [Not Recovered/Not Resolved]
  - Chest pain [Unknown]
  - Fatigue [Not Recovered/Not Resolved]
  - Mood altered [Unknown]
  - Asthenia [Unknown]
  - Pyrexia [Unknown]
  - Product use issue [Not Recovered/Not Resolved]

NARRATIVE: CASE EVENT DATE: 201612
